FAERS Safety Report 13062708 (Version 3)
Quarter: 2018Q1

REPORT INFORMATION
  Report Type: Report from Study
  Country: US (occurrence: US)
  Receive Date: 20161226
  Receipt Date: 20180311
  Transmission Date: 20180508
  Serious: Yes (Disabling, Other)
  Sender: FDA-Public Use
  Company Number: PHEH2016US032984

PATIENT
  Age: 49 Year
  Sex: Male
  Weight: 95.25 kg

DRUGS (2)
  1. COSENTYX [Suspect]
     Active Substance: SECUKINUMAB
     Indication: PSORIATIC ARTHROPATHY
     Dosage: 150 MG (85 WEEKS)
     Route: 058
     Dates: start: 20160427, end: 201611
  2. COSENTYX [Suspect]
     Active Substance: SECUKINUMAB
     Indication: PSORIASIS
     Dosage: 300 MG, QMO
     Route: 058
     Dates: end: 20171103

REACTIONS (3)
  - Cough [Not Recovered/Not Resolved]
  - Pyrexia [Unknown]
  - Abdominal infection [Recovered/Resolved]

NARRATIVE: CASE EVENT DATE: 20160719
